FAERS Safety Report 6241897-2 (Version None)
Quarter: 2009Q2

REPORT INFORMATION
  Report Type: 
  Country: None (occurrence: None)
  Receive Date: 20090622
  Receipt Date: 20090602
  Transmission Date: 20091009
  Serious: No
  Sender: FDA-Public Use
  Company Number: 20285-392-01

PATIENT
  Sex: Female

DRUGS (1)
  1. BENZOYL PEROXIDE 4% ACNE WASH KIT [Suspect]
     Indication: ACNE
     Dosage: TOPICAL (060)
     Route: 061
     Dates: start: 20090501

REACTIONS (2)
  - BURNING SENSATION [None]
  - RASH [None]
